FAERS Safety Report 4865660-X (Version None)
Quarter: 2005Q4

REPORT INFORMATION
  Report Type: 
  Country: None (occurrence: None)
  Receive Date: 20051220
  Receipt Date: 20051207
  Transmission Date: 20060501
  Serious: Yes (Hospitalization, Other)
  Sender: FDA-Public Use
  Company Number: 2005116194

PATIENT
  Age: 74 Year
  Sex: Male
  Weight: 80.7403 kg

DRUGS (3)
  1. VIAGRA [Suspect]
     Indication: ERECTILE DYSFUNCTION
     Dosage: 50 MG (50 MG, AS NECESSARY)
     Dates: start: 20050101, end: 20050101
  2. VIAGRA [Suspect]
     Indication: ERECTILE DYSFUNCTION
     Dosage: 50 MG (50 MG, AS NECESSARY)
     Dates: start: 20041201
  3. SAW PALMETTO (SAW PALMETTO) [Concomitant]

REACTIONS (14)
  - ALTERED VISUAL DEPTH PERCEPTION [None]
  - BLINDNESS UNILATERAL [None]
  - BLOOD CHOLESTEROL INCREASED [None]
  - CORONARY ARTERY OCCLUSION [None]
  - DRUG INEFFECTIVE [None]
  - HERPES ZOSTER [None]
  - IMPAIRED WORK ABILITY [None]
  - LOW INCOME [None]
  - POOR QUALITY DRUG ADMINISTERED [None]
  - RETINAL HAEMORRHAGE [None]
  - STRESS [None]
  - VEIN DISORDER [None]
  - VISION BLURRED [None]
  - VITREOUS FLOATERS [None]
